FAERS Safety Report 12289852 (Version 8)
Quarter: 2016Q4

REPORT INFORMATION
  Report Type: Report from Study
  Country: CA (occurrence: CA)
  Receive Date: 20160421
  Receipt Date: 20161216
  Transmission Date: 20170207
  Serious: Yes (Hospitalization, Other)
  Sender: FDA-Public Use
  Company Number: CA-PFIZER INC-2016220481

PATIENT
  Age: 58 Year
  Sex: Female

DRUGS (5)
  1. ENTYVIO [Suspect]
     Active Substance: VEDOLIZUMAB
     Indication: CROHN^S DISEASE
     Dosage: 300 MG, UNK
     Route: 041
     Dates: start: 20160413
  2. COLESTID [Concomitant]
     Active Substance: COLESTIPOL HYDROCHLORIDE
     Dosage: 5 G, 4X/DAY
     Route: 048
  3. ENTYVIO [Suspect]
     Active Substance: VEDOLIZUMAB
     Dosage: 300 UNK, Q4WEEKS
     Route: 042
     Dates: start: 20161207
  4. VERSIDEP [Concomitant]
     Dosage: 750 MG, 3X/DAY
     Route: 048
  5. PANTOLOC [Suspect]
     Active Substance: PANTOPRAZOLE SODIUM
     Dosage: 80 MG, 2X/DAY
     Route: 048
     Dates: start: 201603, end: 201604

REACTIONS (9)
  - Faecal volume increased [Not Recovered/Not Resolved]
  - Pneumonia [Recovered/Resolved]
  - Platelet count decreased [Unknown]
  - Diarrhoea [Unknown]
  - Infected fistula [Not Recovered/Not Resolved]
  - Crohn^s disease [Not Recovered/Not Resolved]
  - Muscle spasms [Unknown]
  - Blood bilirubin increased [Unknown]
  - Blood electrolytes abnormal [Not Recovered/Not Resolved]

NARRATIVE: CASE EVENT DATE: 2016
